FAERS Safety Report 5749549-X (Version None)
Quarter: 2008Q2

REPORT INFORMATION
  Report Type: 
  Country: None (occurrence: None)
  Receive Date: 20080527
  Receipt Date: 20080514
  Transmission Date: 20081010
  Serious: Yes (Other)
  Sender: FDA-Public Use
  Company Number: FR-AMGEN-UK273660

PATIENT
  Sex: Male

DRUGS (10)
  1. PANITUMUMAB [Suspect]
     Indication: COLORECTAL CANCER
     Route: 042
     Dates: start: 20071128, end: 20080322
  2. PANITUMUMAB - PRIOR TO STUDY DRUG ADMINISTRATION [Suspect]
  3. FLUOROURACIL [Concomitant]
     Route: 042
     Dates: start: 20071129
  4. LEUCOVORIN CALCIUM [Concomitant]
     Route: 042
     Dates: start: 20071129
  5. IRINOTECAN HCL [Concomitant]
     Route: 042
  6. DIANTALVIC [Concomitant]
     Route: 048
     Dates: start: 20071103
  7. MINOCIN [Concomitant]
     Route: 048
     Dates: start: 20071203
  8. AERIUS [Concomitant]
     Route: 048
     Dates: start: 20071207
  9. MAGNESIUM [Concomitant]
     Route: 048
  10. PARAFFIN SOFT [Concomitant]

REACTIONS (2)
  - ERYTHEMA [None]
  - OCULAR TOXICITY [None]
